FAERS Safety Report 9519690 (Version 1)
Quarter: 2013Q1

REPORT INFORMATION
  Report Type: Spontaneous
  Country: US (occurrence: None)
  Receive Date: 20130305
  Receipt Date: 20130305
  Transmission Date: 20140127
  Serious: Yes (Hospitalization, Other)
  Sender: FDA-Public Use
  Company Number: 163-21880-12010291

PATIENT
  Age: 46 Year
  Sex: Female
  Weight: 97.07 kg

DRUGS (7)
  1. REVLIMID [Suspect]
     Indication: PLASMA CELL MYELOMA
     Dosage: DAYS 1-14 OUT OF A 21 DAY CYCLE, PO
     Route: 048
     Dates: start: 20111210
  2. DAPSONE [Suspect]
  3. BACTRIM (BACTRIM) (UNKNOWN) [Concomitant]
  4. VALTREX (VALACICLOVIR HYDROCHLORIDE) (UNKNOWN) [Concomitant]
  5. ZOLOFT (SERTRALINE HYDROCHLORIDE) (UNKNOWN) [Concomitant]
  6. VELCADE [Concomitant]
  7. DEXAMETHASONE (DEXAMETHASONE) (UNKNOWN) [Concomitant]

REACTIONS (4)
  - Pneumonia [None]
  - Rash generalised [None]
  - Weight decreased [None]
  - Back pain [None]
